FAERS Safety Report 6529162-7 (Version None)
Quarter: 2009Q4

REPORT INFORMATION
  Report Type: 
  Country: None (occurrence: None)
  Receive Date: 20091231
  Receipt Date: 20091218
  Transmission Date: 20100525
  Serious: Yes (Hospitalization, Other)
  Sender: FDA-Public Use
  Company Number: AUR-APL-2009-01640

PATIENT
  Age: 85 Year
  Sex: Male

DRUGS (5)
  1. AMOXICILLIN [Suspect]
     Indication: ULCER
     Dosage: 2GMD, ORAL
     Route: 048
     Dates: start: 20090925, end: 20091009
  2. OMEPRAZOLE [Suspect]
     Indication: ULCER
     Dosage: 40MGD, ORAL
     Route: 048
     Dates: start: 20090925, end: 20091019
  3. KARITROMYCIN [Suspect]
     Indication: ULCER
     Dosage: 1GDM- ORAL
     Route: 048
     Dates: start: 20090925, end: 20091009
  4. ENALAPRIL [Concomitant]
  5. SELOKEN 50 MG TABLET [Concomitant]

REACTIONS (3)
  - MYOCARDIAL INFARCTION [None]
  - OEDEMA PERIPHERAL [None]
  - RASH ERYTHEMATOUS [None]
